FAERS Safety Report 12541891 (Version 1)
Quarter: 2016Q3

REPORT INFORMATION
  Report Type: Spontaneous
  Country: GB (occurrence: GB)
  Receive Date: 20160708
  Receipt Date: 20160708
  Transmission Date: 20161109
  Serious: Yes (Other)
  Sender: FDA-Public Use
  Company Number: GB-MYLANLABS-2016M1027538

PATIENT

DRUGS (11)
  1. PIROXICAM. [Concomitant]
     Active Substance: PIROXICAM
     Dosage: APPLY AS DIRECTED
     Route: 061
     Dates: start: 20160506, end: 20160603
  2. CALCIUM CARBONATE. [Concomitant]
     Active Substance: CALCIUM CARBONATE
     Dosage: 1 DF, BID
     Dates: start: 20150724
  3. AMITRIPTYLINE HYDROCHLORIDE. [Concomitant]
     Active Substance: AMITRIPTYLINE HYDROCHLORIDE
     Dosage: 2 DF, QD (AT  NIGHT)
     Dates: start: 20141003
  4. BENDROFLUMETHIAZIDE [Concomitant]
     Active Substance: BENDROFLUMETHIAZIDE
     Dosage: 1 DF, QD (IN THE MORNING.)
     Dates: start: 20141003
  5. ASPIRIN                            /00002701/ [Concomitant]
     Active Substance: ASPIRIN
     Dosage: 1 DF, QD (EACH MORNING)
     Dates: start: 20160506
  6. SEREVENT DISKUS [Concomitant]
     Active Substance: SALMETEROL XINAFOATE
     Dosage: 2 DF, BID
     Route: 055
     Dates: start: 20141003
  7. LISINOPRIL. [Concomitant]
     Active Substance: LISINOPRIL
     Dosage: 1 DF, QD
     Dates: start: 20141003
  8. ATORVASTATIN [Suspect]
     Active Substance: ATORVASTATIN
     Dosage: UNK
     Dates: start: 20141003
  9. VENTOLIN [Concomitant]
     Active Substance: ALBUTEROL SULFATE
     Dosage: 2 DF, QID (AS REQUIRED)
     Route: 055
     Dates: start: 20141003
  10. AMOXICILLIN. [Concomitant]
     Active Substance: AMOXICILLIN
     Dosage: 1 DF, TID
     Dates: start: 20160322, end: 20160327
  11. IBUPROFEN. [Concomitant]
     Active Substance: IBUPROFEN
     Dosage: APPLY 3-4 TIMES A DAY
     Route: 061
     Dates: start: 20160603, end: 20160604

REACTIONS (4)
  - Muscular weakness [Recovering/Resolving]
  - Muscle atrophy [Recovering/Resolving]
  - Myalgia [Recovering/Resolving]
  - Blood creatine phosphokinase increased [Unknown]

NARRATIVE: CASE EVENT DATE: 20160617
